FAERS Safety Report 22175369 (Version 1)
Quarter: 2023Q2

REPORT INFORMATION
  Report Type: Spontaneous
  Country: AU (occurrence: AU)
  Receive Date: 20230405
  Receipt Date: 20230405
  Transmission Date: 20230722
  Serious: Yes (Other)
  Sender: FDA-Public Use
  Company Number: AU-TAKEDA-2023TUS032952

PATIENT
  Age: 19 Year
  Sex: Female

DRUGS (2)
  1. VYVANSE [Suspect]
     Active Substance: LISDEXAMFETAMINE DIMESYLATE
     Indication: Attention deficit hyperactivity disorder
     Dosage: 60 MILLIGRAM, QD
     Route: 065
  2. DEXEDRINE [Concomitant]
     Active Substance: DEXTROAMPHETAMINE SULFATE
     Route: 065

REACTIONS (10)
  - Tunnel vision [Unknown]
  - Therapeutic response unexpected [Unknown]
  - Packaging design issue [Unknown]
  - Drug ineffective [Unknown]
  - Vasoconstriction [Unknown]
  - Product physical issue [Unknown]
  - Dysgeusia [Unknown]
  - Hypersensitivity [Unknown]
  - Hyperhidrosis [Unknown]
  - Raynaud^s phenomenon [Unknown]
